FAERS Safety Report 5747599-0 (Version None)
Quarter: 2008Q2

REPORT INFORMATION
  Report Type: 
  Country: None (occurrence: None)
  Receive Date: 20080523
  Receipt Date: 20080514
  Transmission Date: 20081010
  Serious: Yes (Death, Life-Threatening, Other)
  Sender: FDA-Public Use
  Company Number: BR-JNJFOC-20080407708

PATIENT
  Sex: Female

DRUGS (10)
  1. REMICADE [Suspect]
     Indication: RHEUMATOID ARTHRITIS
     Route: 042
  2. METHOTREXATE [Concomitant]
  3. SIMVASTATIN [Concomitant]
     Dosage: REDUCED FROM 20 MG TO 5 MG
  4. HYDROXYCHLOROQUINE SULFATE [Concomitant]
  5. NIMESULIDE [Concomitant]
  6. PREDNISOLONE [Concomitant]
     Dosage: 5 MG TO 20 MG DAILY
  7. PREDNISOLONE [Concomitant]
  8. FOLIC ACID [Concomitant]
  9. CALCIUM CARBONATE VITAMIN D [Concomitant]
  10. ATACANT [Concomitant]
     Dosage: 8/12.5 MG

REACTIONS (4)
  - MULTI-ORGAN FAILURE [None]
  - NECROTISING FASCIITIS [None]
  - SEPSIS [None]
  - THROMBOCYTOPENIA [None]
